FAERS Safety Report 6216319-8 (Version None)
Quarter: 2009Q2

REPORT INFORMATION
  Report Type: 
  Country: None (occurrence: None)
  Receive Date: 20090605
  Receipt Date: 20090527
  Transmission Date: 20091009
  Serious: Yes (Congenital Anomaly)
  Sender: FDA-Public Use
  Company Number: US-JNJFOC-20090506999

PATIENT

DRUGS (4)
  1. REMICADE [Suspect]
     Indication: DRUG EXPOSURE DURING PREGNANCY
     Dates: start: 20050101
  2. LEXAPRO [Concomitant]
  3. WELLBUTRIN [Concomitant]
  4. VITAMIN B-12 [Concomitant]

REACTIONS (1)
  - ATRIAL SEPTAL DEFECT [None]
